FAERS Safety Report 21259240 (Version 1)
Quarter: 2022Q3

REPORT INFORMATION
  Report Type: Spontaneous
  Country: US (occurrence: US)
  Receive Date: 20220826
  Receipt Date: 20220826
  Transmission Date: 20221027
  Serious: No
  Sender: FDA-Public Use
  Company Number: US-BRISTOL-MYERS SQUIBB COMPANY-2022-087645

PATIENT
  Sex: Female
  Weight: 81.65 kg

DRUGS (3)
  1. ELIQUIS [Suspect]
     Active Substance: APIXABAN
     Indication: Cerebrovascular accident prophylaxis
     Dosage: 5 MG, 2X/DAY
     Route: 048
  2. METOPROLOL TARTRATE [Suspect]
     Active Substance: METOPROLOL TARTRATE
     Dosage: UNK
     Route: 065
  3. LOSARTAN [Concomitant]
     Active Substance: LOSARTAN
     Dosage: UNK
     Route: 065

REACTIONS (7)
  - Weight increased [Unknown]
  - Arthralgia [Unknown]
  - Myalgia [Unknown]
  - Amnesia [Unknown]
  - Alopecia [Unknown]
  - Osteoarthritis [Unknown]
  - Pain [Unknown]
